FAERS Safety Report 8977562 (Version 1)
Quarter: 2012Q4

REPORT INFORMATION
  Report Type: 
  Country: CA (occurrence: CA)
  Receive Date: 20121219
  Receipt Date: 20121219
  Transmission Date: 20130627
  Serious: Yes (Other)
  Sender: FDA-Public Use
  Company Number: CA-ASTELLAS-2012EU010703

PATIENT
  Age: 26 Year
  Sex: Female

DRUGS (1)
  1. TACROLIMUS OINTMENT [Suspect]
     Indication: NECROBIOSIS LIPOIDICA DIABETICORUM
     Dosage: 0.1 %, Unknown/D
     Route: 061

REACTIONS (2)
  - Off label use [Unknown]
  - Staphylococcal infection [Unknown]
